FAERS Safety Report 19404036 (Version 2)
Quarter: 2021Q3

REPORT INFORMATION
  Report Type: Spontaneous
  Country: JP (occurrence: JP)
  Receive Date: 20210611
  Receipt Date: 20210702
  Transmission Date: 20211014
  Serious: Yes (Other)
  Sender: FDA-Public Use
  Company Number: JP-GLAXOSMITHKLINE-JP2021123510

PATIENT
  Age: 73 Year
  Sex: Female

DRUGS (1)
  1. REQUIP [Suspect]
     Active Substance: ROPINIROLE HYDROCHLORIDE
     Dosage: 4 MG

REACTIONS (4)
  - Dysphagia [Unknown]
  - Off label use [Unknown]
  - Dementia [Unknown]
  - Wrong technique in product usage process [Unknown]
